FAERS Safety Report 5505225-X (Version None)
Quarter: 2007Q4

REPORT INFORMATION
  Report Type: 
  Country: None (occurrence: None)
  Receive Date: 20071031
  Receipt Date: 20071019
  Transmission Date: 20080405
  Serious: Yes (Other)
  Sender: FDA-Public Use
  Company Number: 2007333546

PATIENT
  Age: 50 Year
  Sex: Male

DRUGS (1)
  1. LISTERINE ANTISEPTIC MOUTHWASH [Suspect]
     Dosage: ^DRANK A WHOLE BOTTLE^, ORAL
     Route: 048
     Dates: start: 20071001

REACTIONS (6)
  - AGITATION [None]
  - EYE DISORDER [None]
  - FEELING DRUNK [None]
  - INCORRECT ROUTE OF DRUG ADMINISTRATION [None]
  - SKIN DISCOLOURATION [None]
  - SPEECH DISORDER [None]
